FAERS Safety Report 7639713-7 (Version None)
Quarter: 2011Q3

REPORT INFORMATION
  Report Type: 
  Country: None (occurrence: None)
  Receive Date: 20110727
  Receipt Date: 20110721
  Transmission Date: 20111222
  Serious: Yes (Death, Disabling, Other)
  Sender: FDA-Public Use
  Company Number: AU-PFIZER INC-2011101312

PATIENT
  Age: 66 Year
  Sex: Male
  Weight: 85 kg

DRUGS (4)
  1. SUTENT [Suspect]
     Indication: BLADDER CANCER
     Dosage: 50 MG, 1X/DAY
     Route: 048
     Dates: start: 20110405, end: 20110624
  2. FENTANYL [Concomitant]
     Indication: PAIN
     Dosage: 25 UG/HOUR
     Route: 061
     Dates: start: 20110328
  3. COLOXYL WITH SENNA [Concomitant]
     Indication: CONSTIPATION
     Dosage: 2 TABLETS DAILY
     Route: 048
     Dates: start: 20110301
  4. MAXOLON [Concomitant]
     Indication: NAUSEA
     Dosage: 10 MG, 3X/DAY
     Route: 048
     Dates: start: 20110404

REACTIONS (21)
  - BLADDER CANCER [None]
  - NAUSEA [None]
  - DECREASED APPETITE [None]
  - DYSPEPSIA [None]
  - DISEASE PROGRESSION [None]
  - DEEP VEIN THROMBOSIS [None]
  - FATIGUE [None]
  - OCULAR HYPERAEMIA [None]
  - EYE IRRITATION [None]
  - DYSGEUSIA [None]
  - SKIN IRRITATION [None]
  - TUMOUR HAEMORRHAGE [None]
  - WEIGHT DECREASED [None]
  - ARTHRALGIA [None]
  - GOUT [None]
  - HAEMOGLOBIN DECREASED [None]
  - MUCOSAL INFLAMMATION [None]
  - PALMAR-PLANTAR ERYTHRODYSAESTHESIA SYNDROME [None]
  - THROMBOCYTOPENIA [None]
  - SKIN EXFOLIATION [None]
  - LACRIMATION INCREASED [None]
